FAERS Safety Report 10682099 (Version 2)
Quarter: 2015Q1

REPORT INFORMATION
  Report Type: Spontaneous
  Country: FR (occurrence: FR)
  Receive Date: 20141230
  Receipt Date: 20150121
  Transmission Date: 20150720
  Serious: Yes (Hospitalization)
  Sender: FDA-Public Use
  Company Number: FR-SA-2014SA175773

PATIENT
  Age: 67 Year
  Sex: Male

DRUGS (6)
  1. NEBILOX [Suspect]
     Active Substance: NEBIVOLOL HYDROCHLORIDE
     Route: 048
  2. PLAVIX [Suspect]
     Active Substance: CLOPIDOGREL BISULFATE
     Route: 048
  3. INEGY [Suspect]
     Active Substance: EZETIMIBE\SIMVASTATIN
     Route: 048
  4. LERCAPRESS [Suspect]
     Active Substance: ENALAPRIL MALEATE\LERCANIDIPINE HYDROCHLORIDE
     Route: 048
  5. COVERAM [Suspect]
     Active Substance: AMLODIPINE\PERINDOPRIL
     Route: 048
  6. INEGY [Suspect]
     Active Substance: EZETIMIBE\SIMVASTATIN
     Route: 065

REACTIONS (1)
  - Interstitial lung disease [Not Recovered/Not Resolved]

NARRATIVE: CASE EVENT DATE: 2012
